FAERS Safety Report 6962910-0 (Version None)
Quarter: 2010Q3

REPORT INFORMATION
  Report Type: 
  Country: None (occurrence: None)
  Receive Date: 20100902
  Receipt Date: 20100819
  Transmission Date: 20110219
  Serious: Yes (Death)
  Sender: FDA-Public Use
  Company Number: CO-PFIZER INC-2010105247

PATIENT
  Age: 72 Year
  Sex: Female

DRUGS (3)
  1. LIPITOR [Suspect]
     Indication: DYSLIPIDAEMIA
     Dosage: 20 MG, 1X/DAY
     Dates: start: 20070722
  2. OLMESARTAN MEDOXOMIL [Suspect]
     Dosage: 20 MG/12.5 MG,  1X/DAY
     Route: 048
     Dates: start: 20070922
  3. NIFEDIPINE [Concomitant]
     Dosage: 30 MG, 1X/DAY

REACTIONS (1)
  - DEATH [None]
